FAERS Safety Report 13056568 (Version 2)
Quarter: 2017Q1

REPORT INFORMATION
  Report Type: Spontaneous
  Country: US (occurrence: US)
  Receive Date: 20161222
  Receipt Date: 20170109
  Transmission Date: 20170428
  Serious: Yes (Death)
  Sender: FDA-Public Use
  Company Number: US-ACTELION-A-NJ2016-147318

PATIENT
  Age: 65 Year
  Sex: Female

DRUGS (7)
  1. PROTONIX [Concomitant]
     Active Substance: PANTOPRAZOLE SODIUM
     Dosage: UNK
     Dates: start: 20150504
  2. MULTIVITAMIN [Concomitant]
     Active Substance: VITAMINS
  3. ESBRIET [Concomitant]
     Active Substance: PIRFENIDONE
     Dosage: 534 MG, TID
     Dates: start: 20160907
  4. OPSUMIT [Suspect]
     Active Substance: MACITENTAN
     Indication: PULMONARY HYPERTENSION
     Dosage: 10 MG, QD
     Route: 048
     Dates: start: 20150629, end: 20161215
  5. ASPIRIN. [Concomitant]
     Active Substance: ASPIRIN
     Dosage: 81 MG, UNK
     Dates: start: 20150426
  6. GABAPENTIN. [Concomitant]
     Active Substance: GABAPENTIN
     Dosage: 300 MG, TID
     Dates: start: 20160823
  7. ADEMPAS [Concomitant]
     Active Substance: RIOCIGUAT

REACTIONS (2)
  - Cardio-respiratory arrest [Fatal]
  - Respiratory failure [Fatal]

NARRATIVE: CASE EVENT DATE: 20161215
